FAERS Safety Report 15984313 (Version 3)
Quarter: 2022Q2

REPORT INFORMATION
  Report Type: Report from Study
  Country: CA (occurrence: None)
  Receive Date: 20190220
  Receipt Date: 20220429
  Transmission Date: 20220721
  Serious: Yes (Other)
  Sender: FDA-Public Use
  Company Number: CA-ROCHE-2262662

PATIENT
  Age: 39 Year
  Sex: Female
  Weight: 70 kg

DRUGS (5)
  1. OCRELIZUMAB [Suspect]
     Active Substance: OCRELIZUMAB
     Indication: Relapsing-remitting multiple sclerosis
     Dosage: AS PER PROTOCOL: ADMINISTERED AS TWO 300 MG INFUSION ON DAY 1 AND 15, AND THEN AS A SINGLE INFUSION
     Route: 042
     Dates: start: 20170220
  2. LEVONORGESTREL [Concomitant]
     Active Substance: LEVONORGESTREL
     Dates: start: 20171209
  3. ROGAINE [Concomitant]
     Active Substance: MINOXIDIL
     Route: 061
     Dates: start: 20180226
  4. CETIRIZINE HYDROCHLORIDE [Concomitant]
     Active Substance: CETIRIZINE HYDROCHLORIDE
     Dates: start: 20170305
  5. ZANTAC [Concomitant]
     Active Substance: RANITIDINE HYDROCHLORIDE
     Dates: start: 20170305

REACTIONS (1)
  - Basal cell carcinoma [Recovered/Resolved]

NARRATIVE: CASE EVENT DATE: 20180701
